FAERS Safety Report 9703790 (Version 2)
Quarter: 2013Q4

REPORT INFORMATION
  Report Type: Spontaneous
  Country: CH (occurrence: CH)
  Receive Date: 20131122
  Receipt Date: 20131122
  Transmission Date: 20140711
  Serious: Yes (Other)
  Sender: FDA-Public Use
  Company Number: PHHY2013CH126237

PATIENT
  Age: 61 Year
  Sex: Female

DRUGS (4)
  1. BUDESONIDE [Suspect]
     Indication: DRUG-INDUCED LIVER INJURY
     Dosage: 9 MG, DAILY
  2. PREDNISOLONE [Suspect]
     Indication: DRUG-INDUCED LIVER INJURY
     Dosage: 40 MG/DAY
  3. HYDROXYCHLOROQUINE [Concomitant]
     Indication: SYSTEMIC LUPUS ERYTHEMATOSUS
  4. ACETYLSALICYLIC ACID [Concomitant]
     Indication: CARDIOVASCULAR DISORDER

REACTIONS (7)
  - Drug-induced liver injury [Recovered/Resolved]
  - Hypertension [Unknown]
  - Generalised oedema [Unknown]
  - Weight increased [Unknown]
  - Hirsutism [Unknown]
  - Affect lability [Unknown]
  - Drug intolerance [Unknown]
